FAERS Safety Report 10161393 (Version 2)
Quarter: 2014Q2

REPORT INFORMATION
  Report Type: Spontaneous
  Country: US (occurrence: US)
  Receive Date: 20140509
  Receipt Date: 20140509
  Transmission Date: 20141212
  Serious: Yes (Death, Life-Threatening, Hospitalization)
  Sender: FDA-Public Use
  Company Number: US-BEH-2013039077

PATIENT
  Age: 63 Year
  Sex: Female
  Weight: 53 kg

DRUGS (30)
  1. PRIVIGEN [Suspect]
     Indication: CHRONIC INFLAMMATORY DEMYELINATING POLYRADICULONEUROPATHY
     Dosage: FOR 5 WEEKS
     Route: 042
     Dates: start: 20131007, end: 20131007
  2. PRIVIGEN [Suspect]
     Route: 042
     Dates: start: 20131009, end: 20131009
  3. PRIVIGEN [Suspect]
     Route: 042
     Dates: start: 20131014, end: 20131014
  4. PRIVIGEN [Suspect]
     Route: 042
     Dates: start: 20131016, end: 20131016
  5. PRIVIGEN [Suspect]
     Route: 042
     Dates: start: 20131022, end: 20131022
  6. PRIVIGEN [Suspect]
     Route: 042
     Dates: start: 20131024, end: 20131024
  7. PRIVIGEN [Suspect]
     Route: 042
     Dates: start: 20131028, end: 20131028
  8. PRIVIGEN [Suspect]
     Route: 042
     Dates: start: 20131030, end: 20131030
  9. PRIVIGEN [Suspect]
     Route: 042
     Dates: start: 20131104, end: 20131104
  10. PRIVIGEN [Suspect]
     Route: 042
     Dates: start: 20131106, end: 20131106
  11. ACETAMINOPHEN [Concomitant]
     Route: 048
  12. DIPHENHYDRAMINE [Concomitant]
     Route: 048
  13. AMLODIPINE [Concomitant]
     Route: 048
  14. ASPIRIN [Concomitant]
     Route: 048
  15. DOMPERIDONE [Concomitant]
  16. FIORINAL [Concomitant]
  17. GLIMEPERIDE [Concomitant]
  18. LOVASTATIN [Concomitant]
     Route: 048
  19. PLAVIX [Concomitant]
     Route: 048
  20. PAMELOR [Concomitant]
     Dosage: AT HS
     Route: 048
  21. PAMELOR [Concomitant]
  22. RAMIPRIL [Concomitant]
     Route: 048
  23. TRAMADOL [Concomitant]
     Route: 048
  24. TRAMADOL [Concomitant]
  25. MAGNESIUM [Concomitant]
  26. LORAZEPAM [Concomitant]
  27. METFORMIN [Concomitant]
  28. METOPROLOL TARTRATE [Concomitant]
  29. OMEPRAZOLE [Concomitant]
  30. PROBIOTIC [Concomitant]

REACTIONS (2)
  - Cerebrovascular accident [Fatal]
  - Renal failure [Unknown]
